FAERS Safety Report 7941449-X (Version None)
Quarter: 2011Q4

REPORT INFORMATION
  Report Type: 
  Country: None (occurrence: None)
  Receive Date: 20111128
  Receipt Date: 20111117
  Transmission Date: 20120403
  Serious: Yes (Other)
  Sender: FDA-Public Use
  Company Number: US-BAYER-2011-111989

PATIENT
  Age: 32 Year
  Sex: Female

DRUGS (1)
  1. MIRENA [Suspect]
     Indication: CONTRACEPTION
     Dosage: 20 ?G/D, CONT
     Route: 015
     Dates: start: 20110413

REACTIONS (7)
  - PAIN [None]
  - DYSPAREUNIA [None]
  - ABDOMINAL PAIN [None]
  - BREAST DISCHARGE [None]
  - LOSS OF CONTROL OF LEGS [None]
  - FEELING ABNORMAL [None]
  - MENSTRUATION IRREGULAR [None]
